FAERS Safety Report 14845688 (Version 1)
Quarter: 2018Q2

REPORT INFORMATION
  Report Type: Spontaneous
  Country: US (occurrence: US)
  Receive Date: 20180504
  Receipt Date: 20180504
  Transmission Date: 20180711
  Serious: No
  Sender: FDA-Public Use
  Company Number: US-PFIZER INC-2017313313

PATIENT
  Sex: Female

DRUGS (1)
  1. MIDAZOLAM HCL [Suspect]
     Active Substance: MIDAZOLAM HYDROCHLORIDE
     Dosage: UNK

REACTIONS (3)
  - Drug hypersensitivity [Unknown]
  - Pharyngeal oedema [Unknown]
  - Dyspnoea [Unknown]
